FAERS Safety Report 5139714-7 (Version None)
Quarter: 2006Q4

REPORT INFORMATION
  Report Type: 
  Country: None (occurrence: None)
  Receive Date: 20061030
  Receipt Date: 20061020
  Transmission Date: 20070319
  Serious: Yes (Hospitalization, Disabling)
  Sender: FDA-Public Use
  Company Number: FR-ABBOTT-06P-056-0347660-00

PATIENT
  Age: 68 Year
  Sex: Female

DRUGS (1)
  1. DEPAKENE [Suspect]
     Indication: EPILEPSY
     Route: 048
     Dates: start: 19860101, end: 20060915

REACTIONS (14)
  - ABASIA [None]
  - ACTIVITIES OF DAILY LIVING IMPAIRED [None]
  - AMMONIA INCREASED [None]
  - AMNESIA [None]
  - ANOREXIA [None]
  - AREFLEXIA [None]
  - CEREBRAL ATROPHY [None]
  - COGNITIVE DISORDER [None]
  - COORDINATION ABNORMAL [None]
  - DEMENTIA [None]
  - DEPENDENCE [None]
  - ELECTROENCEPHALOGRAM ABNORMAL [None]
  - FALL [None]
  - PARAPARESIS [None]
